FAERS Safety Report 19158099 (Version 3)
Quarter: 2022Q2

REPORT INFORMATION
  Report Type: Spontaneous
  Country: US (occurrence: US)
  Receive Date: 20210420
  Receipt Date: 20220516
  Transmission Date: 20220720
  Serious: No
  Sender: FDA-Public Use
  Company Number: US-PFIZER INC-2021169009

PATIENT
  Age: 56 Year
  Sex: Male

DRUGS (3)
  1. XELJANZ [Suspect]
     Active Substance: TOFACITINIB CITRATE
     Indication: Rheumatoid arthritis
     Dosage: 5 MG, 2X/DAY
     Route: 048
     Dates: start: 2019
  2. XELJANZ [Suspect]
     Active Substance: TOFACITINIB CITRATE
     Indication: Psoriasis
     Dosage: 5 MG, 1X/DAY
     Route: 048
  3. XELJANZ [Suspect]
     Active Substance: TOFACITINIB CITRATE
     Indication: Ankylosing spondylitis
     Dosage: 5 MG, 2X/DAY
     Route: 048
     Dates: start: 202202

REACTIONS (13)
  - Off label use [Unknown]
  - Product use issue [Unknown]
  - Product dose omission in error [Unknown]
  - Product dose omission issue [Unknown]
  - Condition aggravated [Unknown]
  - Discomfort [Unknown]
  - Somnolence [Unknown]
  - Nasopharyngitis [Unknown]
  - Infection [Unknown]
  - Malaise [Unknown]
  - Sinusitis [Not Recovered/Not Resolved]
  - Rhinorrhoea [Unknown]
  - Pain in extremity [Unknown]

NARRATIVE: CASE EVENT DATE: 20220201
